FAERS Safety Report 18465714 (Version 1)
Quarter: 2020Q4

REPORT INFORMATION
  Report Type: Spontaneous
  Country: US (occurrence: US)
  Receive Date: 20201105
  Receipt Date: 20201105
  Transmission Date: 20210114
  Serious: Yes (Hospitalization, Disabling, Other)
  Sender: FDA-Public Use
  Company Number: US-SA-2020SA303101

PATIENT

DRUGS (2)
  1. ZANTAC 150 (RANITIDINE HYDROCHLORIDE) [Suspect]
     Active Substance: RANITIDINE HYDROCHLORIDE
     Indication: GASTROOESOPHAGEAL REFLUX DISEASE
     Dosage: 150 MG, QD(EACH EVENING)
     Dates: start: 2000, end: 202006
  2. REVLIMID [Suspect]
     Active Substance: LENALIDOMIDE
     Indication: PLASMA CELL MYELOMA
     Dosage: UNK UNK, QD
     Route: 048
     Dates: start: 201911, end: 202003

REACTIONS (22)
  - Fatigue [Unknown]
  - Impaired driving ability [Unknown]
  - Monoclonal gammopathy [Unknown]
  - Alopecia [Unknown]
  - Hypoaesthesia [Unknown]
  - Dyspnoea [Unknown]
  - Impaired healing [Unknown]
  - Asthenia [Unknown]
  - Sensory loss [Unknown]
  - Immune system disorder [Unknown]
  - Back pain [Unknown]
  - Thrombosis [Unknown]
  - Emotional distress [Unknown]
  - Musculoskeletal stiffness [Unknown]
  - Paralysis [Unknown]
  - Gastrointestinal disorder [Unknown]
  - Loss of personal independence in daily activities [Unknown]
  - Rash [Unknown]
  - Plasma cell myeloma [Unknown]
  - Hypokinesia [Unknown]
  - Neck pain [Unknown]
  - Procedural pain [Unknown]

NARRATIVE: CASE EVENT DATE: 2017
